FAERS Safety Report 19145840 (Version 3)
Quarter: 2021Q2

REPORT INFORMATION
  Report Type: Report from Study
  Country: GB (occurrence: GB)
  Receive Date: 20210416
  Receipt Date: 20210621
  Transmission Date: 20210717
  Serious: Yes (Other)
  Sender: FDA-Public Use
  Company Number: GB-MYLANLABS-2021M1021908

PATIENT
  Age: 76 Year
  Sex: Male

DRUGS (12)
  1. DUODOPA [Suspect]
     Active Substance: CARBIDOPA\LEVODOPA
     Dosage: MORNING DOSE: 4.7ML, CONTINUOUS RATE: 1.8ML, EXTRA DOSE: 0.5ML, 16HRS
     Route: 050
     Dates: start: 2021, end: 2021
  2. DUODOPA [Suspect]
     Active Substance: CARBIDOPA\LEVODOPA
     Dosage: MORNING DOSE: 4.8ML, CONTINUOUS RATE: 0.8ML, EXTRA DOSE: 0.5ML   UNK
     Route: 050
     Dates: start: 202103
  3. DUODOPA [Suspect]
     Active Substance: CARBIDOPA\LEVODOPA
     Indication: PARKINSON^S DISEASE
     Dosage: 20MG/5MG;  MORNING DOSE 1.8+3ML; CONTINUOUS RATE 0.8ML; EXTRA DOSE 0.5ML,16HRS
     Route: 050
     Dates: start: 20210322, end: 202103
  4. DUODOPA [Suspect]
     Active Substance: CARBIDOPA\LEVODOPA
     Dosage: MORNING DOSE: 4.7ML, CONTINUOUS RATE: 1.8ML, EXTRA DOSE: 0.5ML, 16HRS
     Route: 050
     Dates: start: 2021
  5. ROPINIROLE. [Suspect]
     Active Substance: ROPINIROLE
     Dosage: UNK
     Route: 048
  6. RASAGILINE. [Concomitant]
     Active Substance: RASAGILINE
     Indication: PARKINSON^S DISEASE
     Dosage: 1 MILLIGRAM, QD
     Route: 048
  7. ROPINIROLE. [Suspect]
     Active Substance: ROPINIROLE
     Dosage: 4 MILLIGRAM, 6XD
     Route: 048
  8. ROPINIROLE. [Suspect]
     Active Substance: ROPINIROLE
     Indication: PARKINSON^S DISEASE
     Dosage: 4 MILLIGRAM, 5XD
     Route: 048
  9. DUODOPA [Suspect]
     Active Substance: CARBIDOPA\LEVODOPA
     Dosage: MORNING DOSE: 4.7ML, CONTINUOUS RATE: 1.2ML, EXTRA DOSE: 1 ML
     Route: 050
     Dates: start: 2021, end: 2021
  10. DUODOPA [Suspect]
     Active Substance: CARBIDOPA\LEVODOPA
     Dosage: MORNING DOSE: 4.7ML, CONTINUOUS RATE: 1.2ML, EXTRA DOSE: 1 ML
     Route: 050
     Dates: start: 2021
  11. MADOPAR [Concomitant]
     Active Substance: BENSERAZIDE HYDROCHLORIDE\LEVODOPA
     Indication: PARKINSON^S DISEASE
     Dosage: BD OVERNIGHT
     Route: 048
  12. MADOPAR [Concomitant]
     Active Substance: BENSERAZIDE HYDROCHLORIDE\LEVODOPA
     Dosage: 3 TIMES OVERNIGHT, 50/12.5MG   UNK
     Route: 048

REACTIONS (12)
  - Freezing phenomenon [Not Recovered/Not Resolved]
  - Dystonia [Not Recovered/Not Resolved]
  - Mobility decreased [Unknown]
  - Tremor [Recovered/Resolved]
  - Pruritus [Recovered/Resolved]
  - Rash [Recovered/Resolved]
  - Dyskinesia [Not Recovered/Not Resolved]
  - Hyperkinesia [Not Recovered/Not Resolved]
  - On and off phenomenon [Not Recovered/Not Resolved]
  - Abdominal pain upper [Not Recovered/Not Resolved]
  - Muscle rigidity [Not Recovered/Not Resolved]
  - Groin pain [Not Recovered/Not Resolved]

NARRATIVE: CASE EVENT DATE: 20210325
